FAERS Safety Report 9665058 (Version 4)
Quarter: 2016Q3

REPORT INFORMATION
  Report Type: Report from Study
  Country: CA (occurrence: CA)
  Receive Date: 20131101
  Receipt Date: 20160904
  Transmission Date: 20161109
  Serious: Yes (Other)
  Sender: FDA-Public Use
  Company Number: CA-ROCHE-801763

PATIENT
  Age: 62 Year
  Sex: Male
  Weight: 110 kg

DRUGS (12)
  1. LIPITOR [Concomitant]
     Active Substance: ATORVASTATIN CALCIUM
  2. DIOVAN [Concomitant]
     Active Substance: VALSARTAN
  3. ACTEMRA [Suspect]
     Active Substance: TOCILIZUMAB
     Route: 042
  4. CELEBREX [Concomitant]
     Active Substance: CELECOXIB
  5. FOLIC ACID. [Concomitant]
     Active Substance: FOLIC ACID
  6. ZANTAC [Concomitant]
     Active Substance: RANITIDINE HYDROCHLORIDE
  7. ACTEMRA [Suspect]
     Active Substance: TOCILIZUMAB
     Route: 042
  8. METHOTREXATE. [Concomitant]
     Active Substance: METHOTREXATE
     Route: 048
  9. PREDNISONE. [Concomitant]
     Active Substance: PREDNISONE
  10. OXYCODONE [Suspect]
     Active Substance: OXYCODONE
     Indication: PAIN
     Route: 065
  11. CLINDAMYCIN [Concomitant]
     Active Substance: CLINDAMYCIN\CLINDAMYCIN PHOSPHATE
     Indication: TOOTH EXTRACTION
  12. ACTEMRA [Suspect]
     Active Substance: TOCILIZUMAB
     Indication: RHEUMATOID ARTHRITIS
     Route: 042
     Dates: start: 20101119, end: 20110713

REACTIONS (13)
  - Joint effusion [Recovering/Resolving]
  - Headache [Unknown]
  - Synovitis [Unknown]
  - Abdominal pain [Not Recovered/Not Resolved]
  - Cyst removal [Unknown]
  - Nasopharyngitis [Not Recovered/Not Resolved]
  - Liver function test increased [Unknown]
  - Diverticulitis [Recovering/Resolving]
  - Weight increased [Not Recovered/Not Resolved]
  - Drug dependence [Unknown]
  - Pain [Unknown]
  - Abdominal discomfort [Not Recovered/Not Resolved]
  - Infection [Unknown]

NARRATIVE: CASE EVENT DATE: 2013
